FAERS Safety Report 9700546 (Version 2)
Quarter: 2014Q1

REPORT INFORMATION
  Report Type: Spontaneous
  Country: JP (occurrence: JP)
  Receive Date: 20131121
  Receipt Date: 20140113
  Transmission Date: 20141002
  Serious: Yes (Hospitalization)
  Sender: FDA-Public Use
  Company Number: PHHY2013JP130821

PATIENT
  Age: 40 Year
  Sex: Male

DRUGS (2)
  1. CICLOSPORIN [Suspect]
     Indication: RENAL TRANSPLANT
     Route: 048
     Dates: start: 2008
  2. PREDNISOLONE [Concomitant]
     Route: 048
     Dates: start: 2008

REACTIONS (8)
  - Cardiac arrest [Recovered/Resolved]
  - Depressed level of consciousness [Unknown]
  - Renal impairment [Unknown]
  - Pneumonia [Recovered/Resolved]
  - Dyspnoea [Unknown]
  - Orthopnoea [Unknown]
  - Rales [Unknown]
  - Generalised oedema [Unknown]
